FAERS Safety Report 7864589 (Version 3)
Quarter: 2012Q4

REPORT INFORMATION
  Report Type: Report from Study
  Country: CA (occurrence: CA)
  Receive Date: 20110321
  Receipt Date: 20120829
  Transmission Date: 20130627
  Serious: Yes (Life-Threatening, Hospitalization)
  Sender: FDA-Public Use
  Company Number: CA-ABBOTT-11P-028-0712344-00

PATIENT
  Age: 33 None
  Sex: Female
  Weight: 66.2 kg

DRUGS (8)
  1. KALETRA TABLETS 200MG/50MG [Suspect]
     Indication: ANTIRETROVIRAL THERAPY
     Dosage: Daily: 800/200mg. Unit: 200/50mg, 2 tabs
     Route: 048
     Dates: start: 20010701
  2. ABILIFY [Suspect]
     Indication: PRODUCT USED FOR UNKNOWN INDICATION
     Route: 048
  3. ATIVAN [Suspect]
     Indication: PRODUCT USED FOR UNKNOWN INDICATION
     Route: 048
  4. CLONAZEPAM [Suspect]
     Indication: PRODUCT USED FOR UNKNOWN INDICATION
     Route: 048
  5. CITALOPRAM [Suspect]
     Indication: PRODUCT USED FOR UNKNOWN INDICATION
     Route: 048
  6. COMBIVIR [Concomitant]
     Indication: ANTIRETROVIRAL THERAPY
     Dates: start: 2001
  7. CALCIUM [Concomitant]
     Indication: PRODUCT USED FOR UNKNOWN INDICATION
     Route: 048
  8. PANTOPRAZOLE [Concomitant]
     Indication: PRODUCT USED FOR UNKNOWN INDICATION
     Route: 048

REACTIONS (19)
  - Psychotic disorder [Recovered/Resolved]
  - Suicide attempt [Recovered/Resolved]
  - Intentional self-injury [Recovered/Resolved]
  - Mutism [Unknown]
  - Major depression [Unknown]
  - Personality disorder [Unknown]
  - Depression [Unknown]
  - Affective disorder [Unknown]
  - Psychotic disorder [Unknown]
  - Suicidal ideation [Unknown]
  - Depression [Unknown]
  - Memory impairment [Not Recovered/Not Resolved]
  - Suicide attempt [Unknown]
  - Suicide attempt [Unknown]
  - Psychotic disorder [Unknown]
  - Fatigue [Unknown]
  - Libido decreased [Unknown]
  - Intentional self-injury [Unknown]
  - Stress [Unknown]
